FAERS Safety Report 9518028 (Version 2)
Quarter: 2013Q4

REPORT INFORMATION
  Report Type: Spontaneous
  Country: US (occurrence: US)
  Receive Date: 20130912
  Receipt Date: 20131021
  Transmission Date: 20140711
  Serious: No
  Sender: FDA-Public Use
  Company Number: US-PFIZER INC-2013258612

PATIENT
  Age: 53 Year
  Sex: Female
  Weight: 56 kg

DRUGS (6)
  1. PREMARIN [Suspect]
     Indication: MENOPAUSAL SYMPTOMS
     Dosage: 1 G, FOR TWO WEEKS THEN 0.5 G TWO TIMES A WEEK
     Route: 067
     Dates: start: 20130624, end: 20130703
  2. LABETALOL [Concomitant]
     Dosage: 200 MG, UNK
  3. SENSIPAR [Concomitant]
     Dosage: 90 MG, UNK
  4. PREDNISONE [Concomitant]
     Dosage: 5 MG, UNK
  5. AMLODIPINE [Concomitant]
     Dosage: 10 MG, UNK
  6. CLONIDINE [Concomitant]
     Dosage: UNK

REACTIONS (1)
  - Vulvovaginal discomfort [Recovered/Resolved]
